FAERS Safety Report 9804185 (Version 1)
Quarter: 2014Q1

REPORT INFORMATION
  Report Type: Spontaneous
  Country: US (occurrence: None)
  Receive Date: 20140106
  Receipt Date: 20140106
  Transmission Date: 20141002
  Serious: Yes (Hospitalization)
  Sender: FDA-Public Use
  Company Number: FK201400020

PATIENT
  Age: 43 Year
  Sex: Male

DRUGS (2)
  1. CISPLATIN (MANUFACTURER UNKNOWN) (CISPLATIN) (CISPLATIN) [Suspect]
     Indication: TESTICULAR SEMINOMA (PURE)
  2. ETOPOSIDE [Suspect]
     Indication: TESTICULAR SEMINOMA (PURE)

REACTIONS (12)
  - Vision blurred [None]
  - Palpitations [None]
  - Dyspnoea exertional [None]
  - Headache [None]
  - Visual acuity reduced [None]
  - Retinal haemorrhage [None]
  - Vitreous haemorrhage [None]
  - Retinal haemorrhage [None]
  - Intracranial pressure increased [None]
  - Thrombocytopenia [None]
  - Anaemia [None]
  - Retinopathy [None]
